FAERS Safety Report 25989613 (Version 1)
Quarter: 2025Q4

REPORT INFORMATION
  Report Type: Spontaneous
  Country: US (occurrence: None)
  Receive Date: 20251031
  Receipt Date: 20251031
  Transmission Date: 20260118
  Serious: Yes (Other)
  Sender: FDA-CTU
  Company Number: None

PATIENT
  Age: 34 Year
  Sex: Male
  Weight: 81 kg

DRUGS (1)
  1. FINASTERIDE [Suspect]
     Active Substance: FINASTERIDE

REACTIONS (5)
  - Depressed mood [None]
  - Asthenia [None]
  - Libido decreased [None]
  - Testicular pain [None]
  - Erectile dysfunction [None]

NARRATIVE: CASE EVENT DATE: 20251014
